FAERS Safety Report 17197028 (Version 2)
Quarter: 2020Q1

REPORT INFORMATION
  Report Type: Spontaneous
  Country: US (occurrence: US)
  Receive Date: 20191224
  Receipt Date: 20200114
  Transmission Date: 20200409
  Serious: No
  Sender: FDA-Public Use
  Company Number: US-SA-2019SA292261

PATIENT
  Age: 71 Year
  Sex: Female

DRUGS (1)
  1. ENOXAPARIN SODIUM - WINTHROP [Suspect]
     Active Substance: ENOXAPARIN SODIUM
     Indication: THROMBOSIS
     Dosage: 30 MG EVERY MORNING

REACTIONS (3)
  - Product packaging issue [Unknown]
  - Syringe issue [Unknown]
  - Accidental exposure to product [Unknown]
